FAERS Safety Report 17964051 (Version 5)
Quarter: 2020Q3

REPORT INFORMATION
  Report Type: Report from Study
  Country: US (occurrence: US)
  Receive Date: 20200630
  Receipt Date: 20200825
  Transmission Date: 20201103
  Serious: Yes (Hospitalization, Other)
  Sender: FDA-Public Use
  Company Number: NVSC2020US182659

PATIENT
  Sex: Female

DRUGS (2)
  1. ENTRESTO [Suspect]
     Active Substance: SACUBITRIL\VALSARTAN
     Indication: CARDIAC FAILURE
     Dosage: 100 MG (49/51 MG), BID
     Route: 048
     Dates: start: 202006
  2. ENTRESTO [Suspect]
     Active Substance: SACUBITRIL\VALSARTAN
     Dosage: 200 MG, BID  (97/103 MG)
     Route: 048

REACTIONS (7)
  - Malaise [Unknown]
  - Pain [Unknown]
  - Dyspnoea [Recovered/Resolved]
  - Arrhythmia [Unknown]
  - Fatigue [Unknown]
  - Hypertension [Unknown]
  - Discomfort [Unknown]
